FAERS Safety Report 18534624 (Version 1)
Quarter: 2020Q4

REPORT INFORMATION
  Report Type: Spontaneous
  Country: AT (occurrence: AT)
  Receive Date: 20201123
  Receipt Date: 20201123
  Transmission Date: 20210114
  Serious: Yes (Life-Threatening)
  Sender: FDA-Public Use
  Company Number: AT-BAYER-2020-247245

PATIENT
  Age: 15 Year
  Sex: Male
  Weight: 41 kg

DRUGS (1)
  1. STIVARGA [Suspect]
     Active Substance: REGORAFENIB
     Indication: OSTEOSARCOMA RECURRENT
     Dosage: 160 MG, QD
     Route: 048
     Dates: start: 20191227, end: 20201105

REACTIONS (2)
  - Hypovolaemic shock [Recovered/Resolved]
  - Post procedural haemorrhage [Recovered/Resolved]

NARRATIVE: CASE EVENT DATE: 20201011
